FAERS Safety Report 19630034 (Version 7)
Quarter: 2022Q1

REPORT INFORMATION
  Report Type: Report from Study
  Country: DE (occurrence: None)
  Receive Date: 20210728
  Receipt Date: 20220212
  Transmission Date: 20220423
  Serious: Yes (Hospitalization)
  Sender: FDA-Public Use
  Company Number: DE-ROCHE-2876468

PATIENT
  Age: 52 Year
  Sex: Female
  Weight: 75 kg

DRUGS (22)
  1. ATEZOLIZUMAB [Suspect]
     Active Substance: ATEZOLIZUMAB
     Indication: Triple negative breast cancer
     Dosage: DATE OF LAST DOSE PRIOR TO SAE: 10/JUN/2021 AND 01/JUL/2021
     Route: 042
     Dates: start: 20210527, end: 20210721
  2. PACLITAXEL [Suspect]
     Active Substance: PACLITAXEL
     Indication: Triple negative breast cancer
     Dosage: DATE OF LAST DOSE PRIOR TO SAE: 17/JUN/2021 AND 01/JUL/2021
     Route: 042
     Dates: start: 20210610, end: 20210715
  3. CARBOPLATIN [Suspect]
     Active Substance: CARBOPLATIN
     Indication: Triple negative breast cancer
     Dosage: DATE OF LAST DOSE PRIOR TO SAE: 17/JUN/2021 AND 08/JUL/2021
     Route: 042
     Dates: start: 20210610
  4. CARBOPLATIN [Suspect]
     Active Substance: CARBOPLATIN
     Dosage: DATE OF LAST DOSE PRIOR TO SAE: 17/JUN/2021 AND 08/JUL/2021
     Route: 042
     Dates: start: 20210610
  5. EPIRUBICIN [Suspect]
     Active Substance: EPIRUBICIN
     Indication: Triple negative breast cancer
     Route: 042
     Dates: start: 20210902
  6. CYCLOPHOSPHAMIDE [Suspect]
     Active Substance: CYCLOPHOSPHAMIDE
     Indication: Triple negative breast cancer
     Route: 042
     Dates: start: 20210902
  7. CYMBALTA [Concomitant]
     Active Substance: DULOXETINE HYDROCHLORIDE
     Dates: start: 20140901
  8. BISOPROLOL [Concomitant]
     Active Substance: BISOPROLOL
     Dates: start: 2000
  9. VALSARTAN [Concomitant]
     Active Substance: VALSARTAN
  10. LOPERAMIDE [Concomitant]
     Active Substance: LOPERAMIDE
     Dates: start: 20210623
  11. CIMETIDINE [Concomitant]
     Active Substance: CIMETIDINE
     Dates: start: 20210610
  12. DEXAMETHASONE [Concomitant]
     Active Substance: DEXAMETHASONE
     Dates: start: 20210610
  13. GRANISETRON [Concomitant]
     Active Substance: GRANISETRON
     Dates: start: 20210610
  14. COMIRNATY [Concomitant]
     Active Substance: TOZINAMERAN
     Dates: start: 20210429, end: 20210429
  15. COMIRNATY [Concomitant]
     Active Substance: TOZINAMERAN
     Dates: start: 20210609, end: 20210609
  16. BUTYLSCOPOLAMINE BROMIDE [Concomitant]
     Active Substance: BUTYLSCOPOLAMINE BROMIDE
     Dates: start: 20210701
  17. ZOPICLONE [Concomitant]
     Active Substance: ZOPICLONE
     Dates: start: 20210715, end: 20210715
  18. ENOXAPARIN SODIUM [Concomitant]
     Active Substance: ENOXAPARIN SODIUM
     Dates: start: 20210715, end: 20210719
  19. CLEMASTINE FUMARATE [Concomitant]
     Active Substance: CLEMASTINE FUMARATE
     Dates: start: 20210610
  20. OPTIDERM [Concomitant]
     Dates: start: 20210702
  21. METHYLPREDNISOLONE ACEPONATE [Concomitant]
     Active Substance: METHYLPREDNISOLONE ACEPONATE
     Dates: start: 20210702
  22. TRIAMCINOLONE ACETONIDE [Concomitant]
     Active Substance: TRIAMCINOLONE ACETONIDE
     Dates: start: 20210902

REACTIONS (1)
  - Alanine aminotransferase increased [Recovered/Resolved]

NARRATIVE: CASE EVENT DATE: 20210623
